FAERS Safety Report 21908220 (Version 1)
Quarter: 2023Q1

REPORT INFORMATION
  Report Type: Spontaneous
  Country: US (occurrence: US)
  Receive Date: 20230125
  Receipt Date: 20230125
  Transmission Date: 20230417
  Serious: No
  Sender: FDA-Public Use
  Company Number: US-JNJFOC-20230127511

PATIENT
  Age: 51 Year
  Sex: Male
  Weight: 83.990 kg

DRUGS (3)
  1. TREMFYA [Suspect]
     Active Substance: GUSELKUMAB
     Indication: Psoriasis
     Route: 058
     Dates: start: 201909
  2. TREMFYA [Suspect]
     Active Substance: GUSELKUMAB
  3. VITAMIN D3 [Concomitant]
     Active Substance: CHOLECALCIFEROL
     Indication: Product used for unknown indication

REACTIONS (6)
  - Urticaria [Unknown]
  - Pruritus [Not Recovered/Not Resolved]
  - Peripheral swelling [Recovered/Resolved]
  - Urticaria [Not Recovered/Not Resolved]
  - Hepatic enzyme increased [Unknown]
  - Condition aggravated [Unknown]
